FAERS Safety Report 12634072 (Version 1)
Quarter: 2016Q3

REPORT INFORMATION
  Report Type: Spontaneous
  Country: US (occurrence: None)
  Receive Date: 20160808
  Receipt Date: 20160808
  Transmission Date: 20161109
  Serious: No
  Sender: FDA-Public Use
  Company Number: None

PATIENT
  Age: 51 Year
  Sex: Female
  Weight: 103.6 kg

DRUGS (1)
  1. ALBIGLUTIDE [Suspect]
     Active Substance: ALBIGLUTIDE
     Indication: DIABETES MELLITUS
     Route: 058
     Dates: start: 20160303, end: 20160427

REACTIONS (6)
  - Muscle spasms [None]
  - Vomiting [None]
  - Malaise [None]
  - Abdominal pain upper [None]
  - Nausea [None]
  - Back pain [None]

NARRATIVE: CASE EVENT DATE: 20160503
